FAERS Safety Report 6600607-7 (Version None)
Quarter: 2010Q1

REPORT INFORMATION
  Report Type: 
  Country: None (occurrence: None)
  Receive Date: 20100223
  Receipt Date: 20100223
  Transmission Date: 20100710
  Serious: Yes (Hospitalization)
  Sender: FDA-Public Use
  Company Number: None

PATIENT
  Sex: Female
  Weight: 60.6006 kg

DRUGS (8)
  1. RITUXIMAB, GENENTECH [Suspect]
     Indication: ANTIPHOSPHOLIPID SYNDROME
     Dosage: 1000 MG, ONCE, I.V.
     Route: 042
     Dates: start: 20091221
  2. RITUXIMAB, GENENTECH [Suspect]
     Indication: ANTIPHOSPHOLIPID SYNDROME
     Dosage: 1000 MG, ONCE, I.V.
     Route: 042
     Dates: start: 20100115
  3. ASPIRIN [Concomitant]
  4. FLUVASTATIN [Concomitant]
  5. VICODINE [Concomitant]
  6. ACTONEL [Concomitant]
  7. HYDROCORTISONE [Concomitant]
  8. INTRASITE GEL [Concomitant]

REACTIONS (1)
  - PNEUMONIA [None]
